FAERS Safety Report 15731693 (Version 6)
Quarter: 2021Q1

REPORT INFORMATION
  Report Type: Report from Study
  Country: IT (occurrence: IT)
  Receive Date: 20181217
  Receipt Date: 20210211
  Transmission Date: 20210419
  Serious: Yes (Life-Threatening, Hospitalization)
  Sender: FDA-Public Use
  Company Number: PHHO2018IT012887

PATIENT
  Age: 68 Year
  Sex: Female
  Weight: 63 kg

DRUGS (21)
  1. PIPERACILLIN AND TAZOBACTAM [Concomitant]
     Active Substance: PIPERACILLIN SODIUM\TAZOBACTAM SODIUM
     Indication: NEUTROPENIC COLITIS
     Dosage: UNK
     Route: 065
     Dates: start: 20181110, end: 20181113
  2. CASPOFUNGINE [Concomitant]
     Active Substance: CASPOFUNGIN
     Indication: INFECTION PROPHYLAXIS
     Dosage: UNK
     Route: 065
     Dates: start: 20181113, end: 20181205
  3. OMEPRAZOLE. [Concomitant]
     Active Substance: OMEPRAZOLE
     Indication: PROPHYLAXIS
     Dosage: UNK
     Route: 065
     Dates: start: 20181110, end: 20181208
  4. POSACONAZOLE [Concomitant]
     Active Substance: POSACONAZOLE
     Indication: INFECTION PROPHYLAXIS
     Dosage: UNK
     Route: 065
     Dates: start: 20181110, end: 20181113
  5. LINEZOLID. [Concomitant]
     Active Substance: LINEZOLID
     Indication: INFECTION PROPHYLAXIS
     Dosage: UNK
     Route: 065
     Dates: start: 20181123, end: 20181206
  6. HUMAN ALBUMIN [Concomitant]
     Active Substance: ALBUMIN HUMAN
     Indication: HYPOALBUMINAEMIA
     Dosage: UNK
     Route: 065
     Dates: start: 20181113, end: 20181206
  7. CYTARABINE. [Suspect]
     Active Substance: CYTARABINE
     Indication: ACUTE MYELOID LEUKAEMIA
     Dosage: 314 MG, QD
     Route: 042
     Dates: start: 20181102
  8. AMIKACINE [Concomitant]
     Active Substance: AMIKACIN
     Indication: NEUTROPENIC COLITIS
     Dosage: UNK
     Route: 065
     Dates: start: 20181110, end: 20181112
  9. ACYCLOVIR. [Concomitant]
     Active Substance: ACYCLOVIR
     Indication: NEUTROPENIC COLITIS
  10. IDARUBICIN [Suspect]
     Active Substance: IDARUBICIN
     Indication: ACUTE MYELOID LEUKAEMIA
     Dosage: 19 MG, QD
     Route: 042
     Dates: start: 20181102
  11. ALIZAPRIDE [Concomitant]
     Active Substance: ALIZAPRIDE
     Indication: CHOLECYSTITIS
  12. ACYCLOVIR. [Concomitant]
     Active Substance: ACYCLOVIR
     Indication: INFECTION PROPHYLAXIS
     Dosage: UNK
     Route: 065
     Dates: start: 20181115, end: 20181203
  13. PIPERACILLIN AND TAZOBACTAM [Concomitant]
     Active Substance: PIPERACILLIN SODIUM\TAZOBACTAM SODIUM
     Indication: PNEUMONIA
  14. MEROPENEM. [Concomitant]
     Active Substance: MEROPENEM
     Indication: PNEUMONIA
     Dosage: UNK
     Route: 065
     Dates: start: 20181113, end: 20181129
  15. CASPOFUNGINE [Concomitant]
     Active Substance: CASPOFUNGIN
     Indication: PNEUMONIA
  16. METOPROLOLO [Concomitant]
     Indication: HYPERTENSION
     Dosage: UNK
     Route: 065
  17. AMIKACINE [Concomitant]
     Active Substance: AMIKACIN
     Indication: PNEUMONIA
  18. VANCOMYCIN [Concomitant]
     Active Substance: VANCOMYCIN
     Indication: PNEUMONIA
     Dosage: UNK
     Route: 065
     Dates: start: 20181112, end: 20181122
  19. MIDOSTAURIN [Suspect]
     Active Substance: MIDOSTAURIN
     Dosage: 50 MG, BID
     Route: 048
     Dates: start: 20181202
  20. MIDOSTAURIN [Suspect]
     Active Substance: MIDOSTAURIN
     Indication: ACUTE MYELOID LEUKAEMIA
     Dosage: 50 MG BID
     Route: 048
     Dates: start: 20181109, end: 20181125
  21. ALIZAPRIDE [Concomitant]
     Active Substance: ALIZAPRIDE
     Indication: NEUTROPENIC COLITIS
     Dosage: UNK
     Route: 065
     Dates: start: 20181109, end: 20181207

REACTIONS (1)
  - Cholecystitis [Recovered/Resolved]

NARRATIVE: CASE EVENT DATE: 20181123
